FAERS Safety Report 25866300 (Version 1)
Quarter: 2025Q3

REPORT INFORMATION
  Report Type: Report from Study
  Country: US (occurrence: US)
  Receive Date: 20250930
  Receipt Date: 20250930
  Transmission Date: 20251021
  Serious: Yes (Other)
  Sender: MYLAN
  Company Number: US-MYLANLABS-2025M1082949

PATIENT
  Age: 75 Year
  Sex: Female
  Weight: 60 kg

DRUGS (20)
  1. YUPELRI [Suspect]
     Active Substance: REVEFENACIN
     Indication: Chronic obstructive pulmonary disease
     Dosage: 175 MICROGRAM PER 3 MILLILITRE, QD (ONCE DAILY)
     Dates: start: 20250822
  2. YUPELRI [Suspect]
     Active Substance: REVEFENACIN
     Dosage: 175 MICROGRAM PER 3 MILLILITRE, QD (ONCE DAILY)
     Route: 055
     Dates: start: 20250822
  3. YUPELRI [Suspect]
     Active Substance: REVEFENACIN
     Dosage: 175 MICROGRAM PER 3 MILLILITRE, QD (ONCE DAILY)
     Route: 055
     Dates: start: 20250822
  4. YUPELRI [Suspect]
     Active Substance: REVEFENACIN
     Dosage: 175 MICROGRAM PER 3 MILLILITRE, QD (ONCE DAILY)
     Dates: start: 20250822
  5. PERFOROMIST [Concomitant]
     Active Substance: FORMOTEROL FUMARATE DIHYDRATE
  6. PERFOROMIST [Concomitant]
     Active Substance: FORMOTEROL FUMARATE DIHYDRATE
     Route: 065
  7. PERFOROMIST [Concomitant]
     Active Substance: FORMOTEROL FUMARATE DIHYDRATE
     Route: 065
  8. PERFOROMIST [Concomitant]
     Active Substance: FORMOTEROL FUMARATE DIHYDRATE
  9. BUDESONIDE [Concomitant]
     Active Substance: BUDESONIDE
  10. BUDESONIDE [Concomitant]
     Active Substance: BUDESONIDE
     Route: 065
  11. BUDESONIDE [Concomitant]
     Active Substance: BUDESONIDE
     Route: 065
  12. BUDESONIDE [Concomitant]
     Active Substance: BUDESONIDE
  13. OHTUVAYRE [Concomitant]
     Active Substance: ENSIFENTRINE
  14. OHTUVAYRE [Concomitant]
     Active Substance: ENSIFENTRINE
     Route: 065
  15. OHTUVAYRE [Concomitant]
     Active Substance: ENSIFENTRINE
     Route: 065
  16. OHTUVAYRE [Concomitant]
     Active Substance: ENSIFENTRINE
  17. LATANOPROST [Concomitant]
     Active Substance: LATANOPROST
     Indication: Glaucoma
  18. LATANOPROST [Concomitant]
     Active Substance: LATANOPROST
     Route: 065
  19. LATANOPROST [Concomitant]
     Active Substance: LATANOPROST
     Route: 065
  20. LATANOPROST [Concomitant]
     Active Substance: LATANOPROST

REACTIONS (1)
  - Vision blurred [Unknown]

NARRATIVE: CASE EVENT DATE: 20250822
